FAERS Safety Report 10276172 (Version 1)
Quarter: 2014Q3

REPORT INFORMATION
  Report Type: Spontaneous
  Country: US (occurrence: None)
  Receive Date: 20140701
  Receipt Date: 20140701
  Transmission Date: 20150326
  Serious: Yes (Hospitalization)
  Sender: FDA-Public Use
  Company Number: None

PATIENT
  Age: 66 Year
  Sex: Female
  Weight: 59.1 kg

DRUGS (4)
  1. MULTIVITAMIN [Concomitant]
     Active Substance: VITAMINS
  2. SOM 230 (PASIREOTIDE) [Suspect]
     Active Substance: PASIREOTIDE
     Indication: HEPATOCELLULAR CARCINOMA
     Dosage: 60 MG QMTH SUBCUTANEOUS
     Route: 058
     Dates: start: 20140327
  3. LISINOPRIL. [Concomitant]
     Active Substance: LISINOPRIL
  4. ASPIRIN. [Concomitant]
     Active Substance: ASPIRIN

REACTIONS (16)
  - Constipation [None]
  - Liver function test abnormal [None]
  - Malignant neoplasm progression [None]
  - Ammonia increased [None]
  - Joint swelling [None]
  - Asthenia [None]
  - Disturbance in attention [None]
  - Gait disturbance [None]
  - Speech disorder [None]
  - Haemorrhagic diathesis [None]
  - Fatigue [None]
  - Abdominal distension [None]
  - Contusion [None]
  - Decreased activity [None]
  - Hepatic encephalopathy [None]
  - Confusional state [None]

NARRATIVE: CASE EVENT DATE: 20140627
